FAERS Safety Report 6151465-9 (Version None)
Quarter: 2009Q2

REPORT INFORMATION
  Report Type: 
  Country: None (occurrence: None)
  Receive Date: 20090408
  Receipt Date: 20090305
  Transmission Date: 20091009
  Serious: Yes (Hospitalization)
  Sender: FDA-Public Use
  Company Number: 02100-JPN-06-0051

PATIENT
  Age: 41 Year
  Sex: Male

DRUGS (8)
  1. PLETAL [Suspect]
     Indication: ISCHAEMIC STROKE
     Dosage: 100 MG, BID ORAL
     Route: 048
     Dates: start: 20060208, end: 20060209
  2. AMLODIPINE [Concomitant]
  3. METOLAZONE [Concomitant]
  4. CARVEDILOL [Concomitant]
  5. VALSARTAN/HYDROCHLOROTHIAZIDE [Concomitant]
  6. ASPIRIN [Concomitant]
  7. PRAVASTATIN [Concomitant]
  8. ALUMINUM HYDROXIDE TAB [Concomitant]

REACTIONS (1)
  - MUSCULAR WEAKNESS [None]
